FAERS Safety Report 21108067 (Version 1)
Quarter: 2022Q3

REPORT INFORMATION
  Report Type: Spontaneous
  Country: US (occurrence: US)
  Receive Date: 20220720
  Receipt Date: 20220720
  Transmission Date: 20221026
  Serious: No
  Sender: FDA-Public Use
  Company Number: US-SA-SAC20220715002038

PATIENT
  Age: 59 Year
  Sex: Male

DRUGS (1)
  1. DUPIXENT [Suspect]
     Active Substance: DUPILUMAB
     Indication: Dermatitis atopic
     Dosage: 300MG/2ML
     Route: 058
     Dates: start: 20211111

REACTIONS (2)
  - Injection site haemorrhage [Recovering/Resolving]
  - Knee operation [Recovering/Resolving]

NARRATIVE: CASE EVENT DATE: 20220624
